FAERS Safety Report 6686673-1 (Version None)
Quarter: 2010Q2

REPORT INFORMATION
  Report Type: 
  Country: None (occurrence: None)
  Receive Date: 20100419
  Receipt Date: 20100414
  Transmission Date: 20101027
  Serious: Yes (Hospitalization, Other)
  Sender: FDA-Public Use
  Company Number: US-RB-006820-10

PATIENT
  Sex: Male

DRUGS (3)
  1. SUBOXONE [Suspect]
     Route: 060
     Dates: start: 20060101
  2. XANAX [Concomitant]
     Indication: ANXIETY
     Route: 065
  3. DILANTIN [Concomitant]
     Route: 065

REACTIONS (11)
  - APHASIA [None]
  - CEREBROVASCULAR ACCIDENT [None]
  - CONVULSION [None]
  - DEPRESSION [None]
  - DRUG WITHDRAWAL SYNDROME [None]
  - DYSSTASIA [None]
  - EATING DISORDER [None]
  - FALL [None]
  - HAEMORRHAGE INTRACRANIAL [None]
  - SKULL FRACTURE [None]
  - SUICIDAL IDEATION [None]
